FAERS Safety Report 10192007 (Version 1)
Quarter: 2014Q2

REPORT INFORMATION
  Report Type: Spontaneous
  Country: US (occurrence: US)
  Receive Date: 20140523
  Receipt Date: 20140523
  Transmission Date: 20141212
  Serious: No
  Sender: FDA-Public Use
  Company Number: US-PFIZER INC-2014138513

PATIENT
  Age: 45 Year
  Sex: Female
  Weight: 81.18 kg

DRUGS (1)
  1. LYRICA [Suspect]
     Indication: NERVE INJURY
     Dosage: 150 MG, 2X/DAY
     Route: 048

REACTIONS (2)
  - Gait disturbance [Unknown]
  - Dysstasia [Unknown]
